FAERS Safety Report 7158252-3 (Version None)
Quarter: 2010Q4

REPORT INFORMATION
  Report Type: 
  Country: None (occurrence: None)
  Receive Date: 20101214
  Receipt Date: 20100331
  Transmission Date: 20110411
  Serious: No
  Sender: FDA-Public Use
  Company Number: US-ASTRAZENECA-2010SE14215

PATIENT
  Sex: Female
  Weight: 70.8 kg

DRUGS (4)
  1. CRESTOR [Suspect]
     Indication: CORONARY ARTERY DISEASE
     Route: 048
     Dates: start: 20100301
  2. PRILOSEC [Concomitant]
     Indication: GASTRIC DISORDER
  3. FISH OIL [Concomitant]
  4. BENADRYL [Concomitant]

REACTIONS (2)
  - NAUSEA [None]
  - VISION BLURRED [None]
